FAERS Safety Report 20946373 (Version 2)
Quarter: 2022Q2

REPORT INFORMATION
  Report Type: Report from Study
  Country: CO (occurrence: CO)
  Receive Date: 20220610
  Receipt Date: 20220620
  Transmission Date: 20220721
  Serious: Yes (Hospitalization)
  Sender: FDA-Public Use
  Company Number: CO-JNJFOC-20220607767

PATIENT
  Age: 10 Year
  Sex: Female
  Weight: 26.8 kg

DRUGS (4)
  1. MACITENTAN [Suspect]
     Active Substance: MACITENTAN
     Indication: Pulmonary arterial hypertension
     Route: 048
     Dates: start: 20201201
  2. MACITENTAN [Suspect]
     Active Substance: MACITENTAN
     Route: 048
     Dates: start: 20220426
  3. CEPHALEXIN [Concomitant]
     Active Substance: CEPHALEXIN
     Indication: Lip injury
     Route: 048
     Dates: start: 20220420, end: 20220426
  4. LORATADINE [Concomitant]
     Active Substance: LORATADINE
     Indication: Lip injury
     Route: 048
     Dates: start: 20220420

REACTIONS (1)
  - Asthmatic crisis [Recovered/Resolved]

NARRATIVE: CASE EVENT DATE: 20220530
